FAERS Safety Report 15565787 (Version 1)
Quarter: 2018Q4

REPORT INFORMATION
  Report Type: Spontaneous
  Country: US (occurrence: US)
  Receive Date: 20181025
  Receipt Date: 20181025
  Transmission Date: 20190205
  Serious: Yes (Hospitalization, Other)
  Sender: FDA-Public Use
  Company Number: None

PATIENT
  Age: 78 Year
  Sex: Male
  Weight: 70.31 kg

DRUGS (7)
  1. GOGI BERRIES [Concomitant]
  2. SULFAMETHOXAZOLE-TMP DS TABLET [Suspect]
     Active Substance: SULFAMETHOXAZOLE\TRIMETHOPRIM
     Indication: PRODUCT USED FOR UNKNOWN INDICATION
     Dosage: ?          QUANTITY:2 PILLS;?
     Route: 048
     Dates: start: 20180809, end: 20180810
  3. HABISCUS TEA WITH MINT + LEMON GRASS [Concomitant]
  4. ZINC. [Concomitant]
     Active Substance: ZINC
  5. COPPER [Concomitant]
     Active Substance: COPPER
  6. SEMVASTALIN [Concomitant]
  7. OATBRAN [Concomitant]

REACTIONS (3)
  - Water pollution [None]
  - Wound infection [None]
  - Localised infection [None]

NARRATIVE: CASE EVENT DATE: 20180809
